FAERS Safety Report 24023702 (Version 3)
Quarter: 2024Q3

REPORT INFORMATION
  Report Type: Report from Study
  Country: CN (occurrence: CN)
  Receive Date: 20240627
  Receipt Date: 20240710
  Transmission Date: 20241016
  Serious: No
  Sender: ROCHE
  Company Number: CN-ROCHE-3306033

PATIENT
  Age: 60 Year
  Sex: Male
  Weight: 71.0 kg

DRUGS (1)
  1. ALECENSA [Suspect]
     Active Substance: ALECTINIB HYDROCHLORIDE
     Indication: Lung neoplasm malignant
     Dosage: 224 CAPSULES
     Route: 048
     Dates: start: 20220527

REACTIONS (7)
  - Anaemia [Recovering/Resolving]
  - White blood cell count decreased [Recovering/Resolving]
  - Fatigue [Not Recovered/Not Resolved]
  - Asthenia [Not Recovered/Not Resolved]
  - Hypoaesthesia [Not Recovered/Not Resolved]
  - Muscular weakness [Unknown]
  - Constipation [Recovering/Resolving]

NARRATIVE: CASE EVENT DATE: 20220601
